FAERS Safety Report 11096254 (Version 3)
Quarter: 2015Q2

REPORT INFORMATION
  Report Type: Spontaneous
  Country: US (occurrence: None)
  Receive Date: 20150505
  Receipt Date: 20150617
  Transmission Date: 20150821
  Serious: Yes (Death, Hospitalization)
  Sender: FDA-Public Use
  Company Number: 2015NUEUSA00497

PATIENT
  Age: 71 Year
  Sex: Male

DRUGS (2)
  1. NUEDEXTA [Suspect]
     Active Substance: DEXTROMETHORPHAN HYDROBROMIDE\QUINIDINE SULFATE
     Indication: AFFECT LABILITY
     Dosage: 1 CAP, BID, ORAL
     Route: 048
     Dates: start: 20150323, end: 2015
  2. SINEMET [Concomitant]
     Active Substance: CARBIDOPA\LEVODOPA

REACTIONS (6)
  - Lethargy [None]
  - Hepatic failure [None]
  - Somnolence [None]
  - Gait disturbance [None]
  - Seizure [None]
  - Ataxia [None]

NARRATIVE: CASE EVENT DATE: 20150414
